FAERS Safety Report 23922733 (Version 1)
Quarter: 2024Q2

REPORT INFORMATION
  Report Type: Spontaneous
  Country: US (occurrence: US)
  Receive Date: 20240531
  Receipt Date: 20240531
  Transmission Date: 20240716
  Serious: No
  Sender: FDA-Public Use
  Company Number: US-TEVA-VS-3201205

PATIENT

DRUGS (1)
  1. METOPROLOL [Suspect]
     Active Substance: METOPROLOL
     Indication: Product used for unknown indication
     Dosage: PILLS
     Route: 065

REACTIONS (7)
  - Diarrhoea [Unknown]
  - Abdominal distension [Unknown]
  - Nausea [Unknown]
  - Oropharyngeal pain [Unknown]
  - Erythema [Unknown]
  - Product physical issue [Unknown]
  - Gastrointestinal sounds abnormal [Unknown]

NARRATIVE: CASE EVENT DATE: 20240401
